FAERS Safety Report 21391257 (Version 3)
Quarter: 2022Q4

REPORT INFORMATION
  Report Type: Spontaneous
  Country: IN (occurrence: IN)
  Receive Date: 20220929
  Receipt Date: 20221007
  Transmission Date: 20230113
  Serious: Yes (Hospitalization, Other)
  Sender: FDA-Public Use
  Company Number: IN-SA-2022SA394580

PATIENT
  Age: 77 Year
  Sex: Female

DRUGS (6)
  1. DOCETAXEL [Suspect]
     Active Substance: DOCETAXEL
     Indication: Thyroid cancer metastatic
     Dosage: UNK UNK, QCY
  2. DOCETAXEL [Suspect]
     Active Substance: DOCETAXEL
     Indication: Papillary thyroid cancer
  3. CISPLATIN [Suspect]
     Active Substance: CISPLATIN
     Indication: Thyroid cancer metastatic
     Dosage: UNK UNK, QCY
  4. CISPLATIN [Suspect]
     Active Substance: CISPLATIN
     Indication: Papillary thyroid cancer
  5. FLUOROURACIL [Suspect]
     Active Substance: FLUOROURACIL
     Indication: Thyroid cancer metastatic
     Dosage: UNK UNK, QCY
  6. FLUOROURACIL [Suspect]
     Active Substance: FLUOROURACIL
     Indication: Papillary thyroid cancer

REACTIONS (2)
  - Toxicity to various agents [Unknown]
  - Off label use [Unknown]

NARRATIVE: CASE EVENT DATE: 20200101
